FAERS Safety Report 11842974 (Version 3)
Quarter: 2016Q1

REPORT INFORMATION
  Report Type: Report from Study
  Country: US (occurrence: US)
  Receive Date: 20151216
  Receipt Date: 20160220
  Transmission Date: 20160526
  Serious: Yes (Other)
  Sender: FDA-Public Use
  Company Number: US-ABBVIE-15P-163-1518211-00

PATIENT
  Age: 61 Year
  Sex: Female
  Weight: 43.58 kg

DRUGS (6)
  1. ATIVAN [Concomitant]
     Active Substance: LORAZEPAM
     Indication: ANXIETY
  2. MIRALAX [Concomitant]
     Active Substance: POLYETHYLENE GLYCOL 3350
     Indication: PRODUCT USED FOR UNKNOWN INDICATION
  3. RIBAVIRIN. [Suspect]
     Active Substance: RIBAVIRIN
     Indication: HEPATITIS C
     Route: 048
     Dates: start: 20151112
  4. DULCOLAX NOS [Concomitant]
     Active Substance: BISACODYL OR DOCUSATE SODIUM
     Indication: PRODUCT USED FOR UNKNOWN INDICATION
  5. VIEKIRA PAK [Suspect]
     Active Substance: DASABUVIR\OMBITASVIR\PARITAPREVIR\RITONAVIR
     Indication: HEPATITIS C
     Dosage: 2 PINK TABLETS AND 1 BEIGE TABLET IN AM AND 1 BEIGE TABLET IN PM
     Route: 048
     Dates: start: 20151112, end: 201602
  6. RIBAVIRIN. [Suspect]
     Active Substance: RIBAVIRIN
     Dosage: LOWERED DOSE
     Route: 048
     Dates: start: 20151202

REACTIONS (10)
  - Suicidal ideation [Recovered/Resolved]
  - Irritability [Unknown]
  - Herpes zoster [Unknown]
  - Depression [Recovered/Resolved]
  - Red blood cell count decreased [Recovered/Resolved]
  - Pain [Unknown]
  - Fatigue [Recovered/Resolved]
  - Macrocytosis [Unknown]
  - Mood swings [Unknown]
  - Anaemia [Unknown]

NARRATIVE: CASE EVENT DATE: 20151115
